FAERS Safety Report 9118548 (Version 4)
Quarter: 2015Q1

REPORT INFORMATION
  Report Type: Spontaneous
  Country: US (occurrence: US)
  Receive Date: 20130219
  Receipt Date: 20140213
  Transmission Date: 20150721
  Serious: Yes (Other)
  Sender: FDA-Public Use
  Company Number: US-BRISTOL-MYERS SQUIBB COMPANY-17169095

PATIENT
  Age: 74 Year
  Sex: Female
  Weight: 80.72 kg

DRUGS (1)
  1. ORENCIA [Suspect]
     Active Substance: ABATACEPT
     Indication: RHEUMATOID ARTHRITIS
     Dosage: LAST INF ON 29OCT12?NOV12?TOTAL: 4 DOSES?LAST INF: 06JAN13
     Route: 042
     Dates: start: 20121001

REACTIONS (3)
  - Osteomyelitis [Unknown]
  - Drug dose omission [Unknown]
  - Ear infection [Unknown]

NARRATIVE: CASE EVENT DATE: 201201
